FAERS Safety Report 8763741 (Version 6)
Quarter: 2013Q1

REPORT INFORMATION
  Report Type: Spontaneous
  Country: US (occurrence: US)
  Receive Date: 20120831
  Receipt Date: 20130215
  Transmission Date: 20140127
  Serious: Yes (Hospitalization)
  Sender: FDA-Public Use
  Company Number: PHEH2012US001380

PATIENT
  Age: 17 Year
  Sex: Female
  Weight: 45.35 kg

DRUGS (9)
  1. AFINITOR [Suspect]
     Indication: TUBEROUS SCLEROSIS
     Dosage: 5 MG, DAILY
     Route: 048
     Dates: start: 20120111
  2. AFINITOR [Suspect]
     Dosage: 10 MG, DAILY
     Route: 048
  3. LAMICTAL [Concomitant]
  4. LISINOPRIL [Concomitant]
  5. SINGULAIR [Concomitant]
  6. FLOVENT [Concomitant]
  7. ALBUTEROL [Concomitant]
  8. MELATONIN [Concomitant]
     Dosage: UNK UKN, UNK
  9. RETIN A [Concomitant]

REACTIONS (28)
  - Lymphangioleiomyomatosis [Unknown]
  - Blood pressure increased [Not Recovered/Not Resolved]
  - Nausea [Recovering/Resolving]
  - Vomiting [Recovering/Resolving]
  - Abnormal behaviour [Unknown]
  - Feeling abnormal [Not Recovered/Not Resolved]
  - Paraesthesia [Not Recovered/Not Resolved]
  - Flank pain [Not Recovered/Not Resolved]
  - Depressed mood [Unknown]
  - Increased appetite [Unknown]
  - Lymphadenopathy [Unknown]
  - Renal pain [Unknown]
  - Musculoskeletal chest pain [Unknown]
  - Eating disorder [Recovering/Resolving]
  - Throat tightness [Unknown]
  - Hot flush [Recovered/Resolved]
  - Chills [Unknown]
  - Fatigue [Not Recovered/Not Resolved]
  - Headache [Not Recovered/Not Resolved]
  - Insomnia [Recovering/Resolving]
  - Drug level decreased [Unknown]
  - Dyspnoea [Unknown]
  - Chest pain [Unknown]
  - Neoplasm [Unknown]
  - Malignant neoplasm progression [Unknown]
  - Hypercholesterolaemia [Not Recovered/Not Resolved]
  - Abdominal pain [Recovering/Resolving]
  - Gastroenteritis viral [Unknown]
